FAERS Safety Report 5203824-6 (Version None)
Quarter: 2007Q1

REPORT INFORMATION
  Report Type: 
  Country: None (occurrence: None)
  Receive Date: 20070105
  Receipt Date: 20061226
  Transmission Date: 20070707
  Serious: Yes (Life-Threatening, Hospitalization)
  Sender: FDA-Public Use
  Company Number: 2006SP004481

PATIENT
  Age: 30 Year
  Sex: Male
  Weight: 99 kg

DRUGS (7)
  1. LUNESTA [Suspect]
     Dosage: 3 MG; ORAL
     Route: 048
     Dates: start: 20061222
  2. TEGRETOL [Suspect]
     Dosage: ORAL
     Route: 048
  3. TEGRETOL [Concomitant]
  4. VERAPAMIL [Concomitant]
  5. NEXIUM [Concomitant]
  6. FLEXERIL [Concomitant]
  7. RISPERDAL [Concomitant]

REACTIONS (5)
  - CONVULSION [None]
  - DRUG TOXICITY [None]
  - LOSS OF CONSCIOUSNESS [None]
  - MULTIPLE DRUG OVERDOSE [None]
  - RESPIRATORY FAILURE [None]
